FAERS Safety Report 4687340-6 (Version None)
Quarter: 2005Q2

REPORT INFORMATION
  Report Type: 
  Country: None (occurrence: None)
  Receive Date: 20050608
  Receipt Date: 20050421
  Transmission Date: 20051028
  Serious: Yes (Other)
  Sender: FDA-Public Use
  Company Number: 2005S1002658

PATIENT
  Age: 59 Year
  Sex: Male

DRUGS (15)
  1. FENTANYL [Suspect]
     Indication: BACK PAIN
     Dosage: 50 MCG/HR; QOD; TDER
     Dates: start: 20050412, end: 20050425
  2. FENTANYL [Suspect]
     Dosage: 100 MCG/HR; QOD; TDER
     Dates: start: 20050412, end: 20050425
  3. DIGOXIN [Concomitant]
  4. INSULIN LISPRO [Concomitant]
  5. LORAZEPAM [Concomitant]
  6. AMLODIPINE [Concomitant]
  7. TESTOSTERONE [Concomitant]
  8. FUROSEMIDE [Concomitant]
  9. WARFARIN SODIUM [Concomitant]
  10. CARVEDILOL [Concomitant]
  11. TORSEMIDE [Concomitant]
  12. AMIODARONE HYDROCHLORIDE [Concomitant]
  13. EPLERENONE [Concomitant]
  14. INSULIN GLARGINE [Concomitant]
  15. VALSARTAN [Concomitant]

REACTIONS (3)
  - DRUG EFFECT DECREASED [None]
  - PAIN [None]
  - THERAPEUTIC RESPONSE UNEXPECTED WITH DRUG SUBSTITUTION [None]
